FAERS Safety Report 15080002 (Version 1)
Quarter: 2018Q2

REPORT INFORMATION
  Report Type: Spontaneous
  Country: US (occurrence: US)
  Receive Date: 20180607
  Receipt Date: 20180607
  Transmission Date: 20180711
  Serious: No
  Sender: FDA-Public Use
  Company Number: None

PATIENT
  Sex: Female

DRUGS (1)
  1. LEVOTHYROXINE 100 MCG [Suspect]
     Active Substance: LEVOTHYROXINE

REACTIONS (1)
  - Alopecia [None]
